FAERS Safety Report 11142692 (Version 1)
Quarter: 2015Q2

REPORT INFORMATION
  Report Type: Spontaneous
  Country: JP (occurrence: JP)
  Receive Date: 20150527
  Receipt Date: 20150527
  Transmission Date: 20150821
  Serious: Yes (Other)
  Sender: FDA-Public Use
  Company Number: JP-AMGEN-JPNSP2015050855

PATIENT
  Sex: Female

DRUGS (2)
  1. RHEUMATREX [Suspect]
     Active Substance: METHOTREXATE SODIUM
     Indication: PRODUCT USED FOR UNKNOWN INDICATION
     Dosage: UNK
     Route: 048
  2. ENBREL [Suspect]
     Active Substance: ETANERCEPT
     Indication: PRODUCT USED FOR UNKNOWN INDICATION
     Dosage: UNK
     Route: 058

REACTIONS (11)
  - Viral infection [Unknown]
  - Respiratory tract irritation [Unknown]
  - Pyrexia [Unknown]
  - Headache [Unknown]
  - Platelet count increased [Unknown]
  - Purpura [Unknown]
  - Rhinorrhoea [Unknown]
  - Diarrhoea [Unknown]
  - Cheilitis [Unknown]
  - Pneumonia mycoplasmal [Unknown]
  - Folliculitis [Unknown]

NARRATIVE: CASE EVENT DATE: 20150519
